FAERS Safety Report 6809294-6 (Version None)
Quarter: 2010Q2

REPORT INFORMATION
  Report Type: 
  Country: None (occurrence: None)
  Receive Date: 20100630
  Receipt Date: 20100210
  Transmission Date: 20101027
  Serious: Yes (Other)
  Sender: FDA-Public Use
  Company Number: AU-JNJFOC-20100607798

PATIENT
  Age: 59 Year
  Sex: Male

DRUGS (3)
  1. HALOPERIDOL [Suspect]
     Indication: MANIA
     Route: 065
  2. LITHIUM CORBONATE [Suspect]
     Indication: MANIA
     Route: 065
  3. CHLORPROMAZINE [Suspect]
     Indication: MANIA
     Route: 065

REACTIONS (3)
  - CATATONIA [None]
  - COGWHEEL RIGIDITY [None]
  - PARKINSONIAN GAIT [None]
